FAERS Safety Report 9916532 (Version 1)
Quarter: 2014Q1

REPORT INFORMATION
  Report Type: Spontaneous
  Country: GB (occurrence: None)
  Receive Date: 20140219
  Receipt Date: 20140219
  Transmission Date: 20141002
  Serious: No
  Sender: FDA-Public Use
  Company Number: GB2014K0389SPO

PATIENT
  Age: 73 Year
  Sex: Female

DRUGS (2)
  1. LANSOPRAZOLE GENERIC (LANSOPRAZOLE) UNKNOWN [Suspect]
     Indication: HIATUS HERNIA
     Dosage: 15 MG, 1X PER DAY, PO
     Route: 048
     Dates: start: 20100601, end: 20140118
  2. THYROXINE (LEVOTHYROXINE, THYROXINE); UNKNOWN [Concomitant]

REACTIONS (4)
  - Dyspnoea [None]
  - Flatulence [None]
  - Frequent bowel movements [None]
  - Upper-airway cough syndrome [None]
